FAERS Safety Report 7605705-7 (Version None)
Quarter: 2011Q3

REPORT INFORMATION
  Report Type: 
  Country: None (occurrence: None)
  Receive Date: 20110713
  Receipt Date: 20110708
  Transmission Date: 20111222
  Serious: Yes (Hospitalization, Other)
  Sender: FDA-Public Use
  Company Number: US-PFIZER INC-2011154602

PATIENT
  Sex: Female
  Weight: 67.12 kg

DRUGS (7)
  1. ACETYLSALICYLIC ACID [Concomitant]
     Indication: CEREBROVASCULAR ACCIDENT PROPHYLAXIS
  2. GEODON [Suspect]
     Indication: BIPOLAR DISORDER
     Dosage: 40 MG, 2X/DAY
     Route: 048
     Dates: start: 20090101
  3. LORAZEPAM [Concomitant]
     Indication: SLEEP DISORDER
     Dosage: 2 MG, DAILY
  4. TEMAZEPAM [Concomitant]
     Indication: SLEEP DISORDER
     Dosage: 7.5MG TO 45MG DAILY
  5. SYNTHROID [Concomitant]
     Indication: HYPOTHYROIDISM
     Dosage: 0.75 UG, DAILY
  6. ACETYLSALICYLIC ACID [Concomitant]
     Indication: CARDIOVASCULAR EVENT PROPHYLAXIS
     Dosage: 81 MG, DAILY
  7. CLONAZEPAM [Concomitant]
     Indication: SLEEP DISORDER
     Dosage: 0.6 MG, DAILY

REACTIONS (5)
  - DRY MOUTH [None]
  - MANIA [None]
  - STRESS [None]
  - CONFUSIONAL STATE [None]
  - RESTLESS LEGS SYNDROME [None]
